FAERS Safety Report 8036884-8 (Version None)
Quarter: 2012Q1

REPORT INFORMATION
  Report Type: 
  Country: None (occurrence: None)
  Receive Date: 20120111
  Receipt Date: 20120109
  Transmission Date: 20120608
  Serious: No
  Sender: FDA-Public Use
  Company Number: US-PFIZER INC-2011270784

PATIENT
  Sex: Female
  Weight: 28 kg

DRUGS (4)
  1. GENOTROPIN [Suspect]
     Indication: DWARFISM
  2. GENOTROPIN [Suspect]
     Indication: GROWTH HORMONE DEFICIENCY
     Dosage: 1.4 MG, 6 DAYS/WEEK
     Dates: start: 20111028, end: 20111104
  3. GENOTROPIN [Suspect]
     Indication: GROWTH HORMONE DEFICIENCY
     Dosage: 1.4 MG, 6 DAYS/WEEK
     Dates: start: 20111123
  4. GENOTROPIN [Suspect]
     Indication: DWARFISM

REACTIONS (1)
  - RASH PRURITIC [None]
